FAERS Safety Report 9518322 (Version 1)
Quarter: 2013Q1

REPORT INFORMATION
  Report Type: Spontaneous
  Country: US (occurrence: None)
  Receive Date: 20130305
  Receipt Date: 20130305
  Transmission Date: 20140127
  Serious: Yes (Other)
  Sender: FDA-Public Use
  Company Number: 163-21880-12121345

PATIENT
  Age: 63 Year
  Sex: Male
  Weight: 106.3 kg

DRUGS (5)
  1. REVLIMID (LENALIDOMIDE) (25 MILLIGRAM, CAPSULES) [Suspect]
     Indication: PLASMA CELL MYELOMA
     Dosage: 25 MG, 21 IN 28 D, PO
     Route: 048
     Dates: start: 20100405
  2. DEXAMETHASONE [Concomitant]
  3. MORPHINE ER (MORPHINE) [Concomitant]
  4. ZOMETA (ZOLEDRONIC ACID) [Concomitant]
  5. VELCADE (BORTEZOMIB) [Concomitant]

REACTIONS (1)
  - Disease progression [None]
